FAERS Safety Report 5305619-1 (Version None)
Quarter: 2007Q2

REPORT INFORMATION
  Report Type: 
  Country: None (occurrence: None)
  Receive Date: 20070416
  Receipt Date: 20070405
  Transmission Date: 20071010
  Serious: Yes (Death, Disabling, Other)
  Sender: FDA-Public Use
  Company Number: 2007SP004864

PATIENT
  Age: 63 Year
  Sex: Female
  Weight: 75 kg

DRUGS (6)
  1. INTRON A [Suspect]
     Indication: MALIGNANT MELANOMA
     Dosage: 3 MIU
     Dates: start: 20050330, end: 20060313
  2. DACARBAZINE [Suspect]
     Indication: MALIGNANT MELANOMA
     Dates: start: 20061023, end: 20070221
  3. NEO-MERCAZOLE TAB [Suspect]
     Indication: HYPERTHYROIDISM
     Dosage: 2 DF; QD
  4. PARIET (CON.) [Concomitant]
  5. LEVOTHYROX (CON.) [Concomitant]
  6. TAHOR (CON.) [Concomitant]

REACTIONS (3)
  - CEREBRAL HAEMORRHAGE [None]
  - CHOLESTASIS [None]
  - HEPATIC STEATOSIS [None]
